FAERS Safety Report 12909819 (Version 2)
Quarter: 2016Q4

REPORT INFORMATION
  Report Type: Report from Study
  Country: JP (occurrence: JP)
  Receive Date: 20161104
  Receipt Date: 20161202
  Transmission Date: 20170207
  Serious: Yes (Death, Other)
  Sender: FDA-Public Use
  Company Number: PHJP2016JP031497

PATIENT
  Age: 77 Year
  Sex: Female

DRUGS (10)
  1. BORTEZOMIB [Concomitant]
     Active Substance: BORTEZOMIB
     Indication: PLASMA CELL MYELOMA
     Dosage: 0.7 MG/M2, QW
     Route: 058
     Dates: start: 20150917, end: 20151007
  2. FARYDAK [Suspect]
     Active Substance: PANOBINOSTAT
     Indication: PLASMA CELL MYELOMA
     Dosage: 20 MG, QD
     Route: 048
     Dates: start: 20150917, end: 20151007
  3. BORTEZOMIB [Concomitant]
     Active Substance: BORTEZOMIB
     Dosage: 0.7 MG/M2, QW
     Route: 058
     Dates: start: 20151029, end: 20151031
  4. DEXAMETHASONE. [Concomitant]
     Active Substance: DEXAMETHASONE
     Indication: PLASMA CELL MYELOMA
     Route: 065
     Dates: start: 20150917, end: 20151007
  5. DEXAMETHASONE. [Concomitant]
     Active Substance: DEXAMETHASONE
     Route: 065
     Dates: start: 20151008, end: 20151028
  6. TAKEPRON [Concomitant]
     Active Substance: LANSOPRAZOLE
     Indication: GASTROOESOPHAGEAL REFLUX DISEASE
     Dosage: 15 MG, UNK
     Route: 048
  7. FARYDAK [Suspect]
     Active Substance: PANOBINOSTAT
     Dosage: 20 MG, QD
     Route: 048
     Dates: start: 20151029, end: 20151031
  8. FARYDAK [Suspect]
     Active Substance: PANOBINOSTAT
     Dosage: 20 MG, QD
     Route: 048
     Dates: start: 20151008, end: 20151028
  9. BORTEZOMIB [Concomitant]
     Active Substance: BORTEZOMIB
     Dosage: 0.7 MG/M2, QW
     Route: 058
     Dates: start: 20151008, end: 20151028
  10. DEXAMETHASONE. [Concomitant]
     Active Substance: DEXAMETHASONE
     Route: 065
     Dates: start: 20151029, end: 20151031

REACTIONS (3)
  - Malignant neoplasm progression [Fatal]
  - Plasma cell myeloma [Fatal]
  - Haemoglobin decreased [Unknown]

NARRATIVE: CASE EVENT DATE: 20151110
